FAERS Safety Report 5081905-8 (Version None)
Quarter: 2006Q3

REPORT INFORMATION
  Report Type: 
  Country: None (occurrence: None)
  Receive Date: 20060811
  Receipt Date: 20060802
  Transmission Date: 20061208
  Serious: Yes (Hospitalization, Other)
  Sender: FDA-Public Use
  Company Number: 2006-04-1100

PATIENT
  Age: 67 Year
  Sex: Female

DRUGS (4)
  1. TEMODAL [Suspect]
     Indication: GLIOBLASTOMA MULTIFORME
     Dosage: TIW ORAL
     Route: 048
     Dates: start: 20060124, end: 20060316
  2. SEPTRA [Suspect]
     Indication: PNEUMOCYSTIS JIROVECI PNEUMONIA
     Dosage: TABLET TID ORAL
     Route: 048
     Dates: start: 20060104
  3. SEPTRA [Suspect]
     Indication: PROPHYLAXIS
     Dosage: TABLET TID ORAL
     Route: 048
     Dates: start: 20060104
  4. RADIATION THERAPY NO DOSE FORM [Suspect]
     Indication: GLIOBLASTOMA MULTIFORME
     Dosage: UNKNOWN X-RAY THERAPY
     Dates: start: 20060124

REACTIONS (2)
  - HEPATIC FAILURE [None]
  - JAUNDICE CHOLESTATIC [None]
